FAERS Safety Report 16273145 (Version 2)
Quarter: 2021Q2

REPORT INFORMATION
  Report Type: Spontaneous
  Country: GB (occurrence: GB)
  Receive Date: 20190506
  Receipt Date: 20210417
  Transmission Date: 20210716
  Serious: Yes (Other)
  Sender: FDA-Public Use
  Company Number: GB-AUROBINDO-AUR-APL-2019-021421

PATIENT
  Age: 71 Year
  Sex: Male

DRUGS (10)
  1. RAMIPRIL. [Concomitant]
     Active Substance: RAMIPRIL
     Indication: PRODUCT USED FOR UNKNOWN INDICATION
     Dosage: 10 MILLIGRAM, DAILY
     Route: 065
  2. BISOPROLOL [Suspect]
     Active Substance: BISOPROLOL
     Indication: CARDIAC DISORDER
     Dosage: 5 MILLIGRAM, ONCE A DAY
     Route: 065
  3. MEXILETINE [Interacting]
     Active Substance: MEXILETINE
     Indication: CARDIAC FAILURE
  4. SACUBITRIL;VALSARTAN [Interacting]
     Active Substance: SACUBITRIL\VALSARTAN
     Indication: ISCHAEMIC CARDIOMYOPATHY
     Dosage: 2 DOSAGE FORM, ONCE A DAY (1 DF (49/51 MG), BID)
     Route: 065
  5. EPLERENONE. [Concomitant]
     Active Substance: EPLERENONE
     Indication: ISCHAEMIC CARDIOMYOPATHY
  6. MEXILETINE [Interacting]
     Active Substance: MEXILETINE
     Indication: CARDIAC DISORDER
     Dosage: 200 MILLIGRAM, 3 TIMES A DAY
     Route: 065
  7. MEXILETINE [Interacting]
     Active Substance: MEXILETINE
     Indication: ISCHAEMIC CARDIOMYOPATHY
  8. BISOPROLOL [Suspect]
     Active Substance: BISOPROLOL
     Indication: ISCHAEMIC CARDIOMYOPATHY
  9. EPLERENONE. [Concomitant]
     Active Substance: EPLERENONE
     Indication: CARDIAC DISORDER
     Dosage: 50 MILLIGRAM, ONCE A DAY
     Route: 065
  10. VALSARTAN. [Concomitant]
     Active Substance: VALSARTAN
     Indication: CARDIAC FAILURE
     Dosage: PATIENT B: SACUBITRIL/VALSARTAN (49/51 MG B.I.D.)
     Route: 065

REACTIONS (5)
  - Ventricular tachycardia [Recovered/Resolved]
  - Fatigue [Unknown]
  - Insomnia [Unknown]
  - Drug interaction [Unknown]
  - Drug intolerance [Unknown]
